FAERS Safety Report 7157188-1 (Version None)
Quarter: 2010Q4

REPORT INFORMATION
  Report Type: 
  Country: None (occurrence: None)
  Receive Date: 20101214
  Receipt Date: 20091218
  Transmission Date: 20110411
  Serious: No
  Sender: FDA-Public Use
  Company Number: US-ASTRAZENECA-2009SE32854

PATIENT
  Age: 67 Year
  Sex: Male

DRUGS (4)
  1. CRESTOR [Suspect]
     Indication: BLOOD CHOLESTEROL INCREASED
     Route: 048
     Dates: start: 20080901, end: 20081101
  2. CRESTOR [Suspect]
     Route: 048
     Dates: start: 20081201
  3. DIOVAN [Concomitant]
  4. ASPIRIN [Concomitant]

REACTIONS (2)
  - PAIN IN EXTREMITY [None]
  - TENDON DISORDER [None]
